FAERS Safety Report 21641895 (Version 1)
Quarter: 2022Q4

REPORT INFORMATION
  Report Type: Other
  Country: US (occurrence: None)
  Receive Date: 20221125
  Receipt Date: 20221125
  Transmission Date: 20230113
  Serious: Yes (Death)
  Sender: FDA-Public Use
  Company Number: US-ROCHE-3184340

PATIENT
  Age: 63 Year
  Sex: Female

DRUGS (1)
  1. OCREVUS [Suspect]
     Active Substance: OCRELIZUMAB
     Indication: Multiple sclerosis
     Dosage: VIAL, DATE OF TREATMENT: 12/AUG/2020, 23/FEB/2021, 25/AUG/2021, 23/FEB/2022.
     Route: 042
     Dates: start: 20191125

REACTIONS (1)
  - Death [Fatal]
